FAERS Safety Report 15047684 (Version 1)
Quarter: 2018Q2

REPORT INFORMATION
  Report Type: Spontaneous
  Country: US (occurrence: US)
  Receive Date: 20180621
  Receipt Date: 20180621
  Transmission Date: 20180711
  Serious: No
  Sender: FDA-Public Use
  Company Number: US-VIFOR (INTERNATIONAL) INC.-VIT-2018-06038

PATIENT
  Sex: Male

DRUGS (18)
  1. CALCITRIOL. [Concomitant]
     Active Substance: CALCITRIOL
  2. FISH OIL [Concomitant]
     Active Substance: FISH OIL
  3. GABAPENTIN. [Concomitant]
     Active Substance: GABAPENTIN
  4. SERTRALINE HYDROCHLORIDE. [Concomitant]
     Active Substance: SERTRALINE HYDROCHLORIDE
  5. ZOLPIDEM TARTRATE. [Concomitant]
     Active Substance: ZOLPIDEM TARTRATE
  6. ATORVASTATIN CALCIUM. [Concomitant]
     Active Substance: ATORVASTATIN CALCIUM
  7. HYDRALAZINE HYDROCHLORIDE. [Concomitant]
     Active Substance: HYDRALAZINE HYDROCHLORIDE
  8. METOLAZONE. [Concomitant]
     Active Substance: METOLAZONE
  9. BUMETANIDE. [Concomitant]
     Active Substance: BUMETANIDE
  10. CLOPIDOGREL BISULFATE. [Concomitant]
     Active Substance: CLOPIDOGREL BISULFATE
  11. NITROSTAT [Concomitant]
     Active Substance: NITROGLYCERIN
  12. ISOSORBIDE. [Concomitant]
     Active Substance: ISOSORBIDE
  13. LOSARTAN POTASSIUM. [Concomitant]
     Active Substance: LOSARTAN POTASSIUM
  14. VELTASSA [Suspect]
     Active Substance: PATIROMER
     Indication: HYPERKALAEMIA
     Route: 048
     Dates: start: 20170720
  15. CARVEDILOL. [Concomitant]
     Active Substance: CARVEDILOL
  16. PARACETAMOL [Concomitant]
     Active Substance: ACETAMINOPHEN
  17. LEVODOPA~~CARBIDOPA [Concomitant]
  18. HUMALOG [Concomitant]
     Active Substance: INSULIN LISPRO

REACTIONS (2)
  - Fall [Unknown]
  - Off label use [Unknown]
